FAERS Safety Report 7417987-5 (Version None)
Quarter: 2011Q2

REPORT INFORMATION
  Report Type: 
  Country: None (occurrence: None)
  Receive Date: 20110415
  Receipt Date: 20110414
  Transmission Date: 20111010
  Serious: Yes (Hospitalization)
  Sender: FDA-Public Use
  Company Number: GB-ROCHE-754366

PATIENT
  Sex: Male

DRUGS (4)
  1. PREDNISOLONE [Concomitant]
     Route: 048
  2. DICLOFENAC [Concomitant]
     Route: 048
  3. PARACETAMOL [Concomitant]
     Route: 048
  4. ROACTEMRA [Suspect]
     Dosage: FREQUENCY REPORTED AS 4/52
     Route: 042
     Dates: start: 20101216, end: 20101216

REACTIONS (1)
  - CONDITION AGGRAVATED [None]
